FAERS Safety Report 8287487-1 (Version None)
Quarter: 2012Q2

REPORT INFORMATION
  Report Type: 
  Country: None (occurrence: None)
  Receive Date: 20120411
  Receipt Date: 20120327
  Transmission Date: 20120825
  Serious: Yes (Death)
  Sender: FDA-Public Use
  Company Number: B0710459A

PATIENT
  Sex: Male

DRUGS (5)
  1. CEFUROXIME SODIUM [Suspect]
     Indication: PRODUCT USED FOR UNKNOWN INDICATION
  2. HEPARIN [Suspect]
     Indication: PRODUCT USED FOR UNKNOWN INDICATION
  3. SIMVASTATIN [Suspect]
     Indication: PRODUCT USED FOR UNKNOWN INDICATION
  4. RAMIPRIL [Suspect]
  5. SEVOFLURANE [Suspect]
     Indication: PRODUCT USED FOR UNKNOWN INDICATION

REACTIONS (3)
  - HEPATOTOXICITY [None]
  - HEPATIC NECROSIS [None]
  - HEPATORENAL SYNDROME [None]
